FAERS Safety Report 11443084 (Version 5)
Quarter: 2016Q1

REPORT INFORMATION
  Report Type: Spontaneous
  Country: US (occurrence: US)
  Receive Date: 20150901
  Receipt Date: 20160104
  Transmission Date: 20160525
  Serious: No
  Sender: FDA-Public Use
  Company Number: US-PFIZER INC-2015288697

PATIENT
  Age: 65 Year
  Sex: Female
  Weight: 81 kg

DRUGS (7)
  1. NEURONTIN [Concomitant]
     Active Substance: GABAPENTIN
     Indication: NEURALGIA
     Dosage: AS NEEDED ONLY, 1 X A MONTH MAX
  2. PROZAC [Suspect]
     Active Substance: FLUOXETINE HYDROCHLORIDE
     Indication: DEPRESSION
     Dosage: 20 MG, 2X/DAY
     Route: 048
  3. XELJANZ [Suspect]
     Active Substance: TOFACITINIB CITRATE
     Indication: RHEUMATOID ARTHRITIS
     Dosage: 5 MG, 2X/DAY
     Route: 048
     Dates: start: 201308
  4. PROZAC [Suspect]
     Active Substance: FLUOXETINE HYDROCHLORIDE
     Indication: PAIN
     Dosage: 20 MG OR 40MG, 2X/DAY
     Route: 048
     Dates: end: 20150701
  5. PREDNISONE. [Concomitant]
     Active Substance: PREDNISONE
     Dosage: UNK
     Dates: start: 20150814, end: 20150820
  6. PREDNISONE. [Concomitant]
     Active Substance: PREDNISONE
     Indication: SCIATICA
     Dosage: 6 DAY COURSE BLISTER PACK THAT WENT FROM 6 A DAY, TO 5, 4, 3, 2 THEN 1
     Dates: end: 20150814
  7. NEURONTIN [Concomitant]
     Active Substance: GABAPENTIN
     Indication: RESTLESS LEGS SYNDROME

REACTIONS (9)
  - Drug ineffective [Recovered/Resolved]
  - Body height decreased [Unknown]
  - Anxiety [Recovered/Resolved]
  - Depressed mood [Recovered/Resolved]
  - Product use issue [Unknown]
  - Drug withdrawal syndrome [Recovered/Resolved]
  - Pain [Recovered/Resolved]
  - Mood swings [Recovered/Resolved]
  - Fatigue [Recovered/Resolved]

NARRATIVE: CASE EVENT DATE: 201412
